FAERS Safety Report 6022997-9 (Version None)
Quarter: 2008Q4

REPORT INFORMATION
  Report Type: 
  Country: None (occurrence: None)
  Receive Date: 20081222
  Receipt Date: 20080920
  Transmission Date: 20090506
  Serious: No
  Sender: FDA-Public Use
  Company Number: ALL1-2008-02618

PATIENT
  Age: 48 Year
  Sex: Female

DRUGS (1)
  1. VYVANSE [Suspect]
     Indication: ATTENTION DEFICIT/HYPERACTIVITY DISORDER
     Dosage: 70 MG, 1X/DAY:QD, ORAL
     Route: 048
     Dates: start: 20080727, end: 20080907

REACTIONS (1)
  - SUNBURN [None]
